FAERS Safety Report 7388001-5 (Version None)
Quarter: 2011Q1

REPORT INFORMATION
  Report Type: 
  Country: None (occurrence: None)
  Receive Date: 20110323
  Receipt Date: 20110307
  Transmission Date: 20110831
  Serious: Yes (Other)
  Sender: FDA-Public Use
  Company Number: B0705568A

PATIENT

DRUGS (1)
  1. ITRACONAZOLE [Suspect]

REACTIONS (1)
  - CARDIAC FAILURE ACUTE [None]
